FAERS Safety Report 25177959 (Version 1)
Quarter: 2025Q2

REPORT INFORMATION
  Report Type: Spontaneous
  Country: HR (occurrence: HR)
  Receive Date: 20250409
  Receipt Date: 20250409
  Transmission Date: 20250716
  Serious: Yes (Death, Other)
  Sender: AMGEN
  Company Number: HR-AMGEN-HRVSP2025065656

PATIENT

DRUGS (2)
  1. CARFILZOMIB [Suspect]
     Active Substance: CARFILZOMIB
     Indication: Plasma cell myeloma refractory
     Route: 065
  2. DEXAMETHASONE [Suspect]
     Active Substance: DEXAMETHASONE
     Indication: Plasma cell myeloma refractory
     Route: 065

REACTIONS (13)
  - Death [Fatal]
  - Plasma cell myeloma [Unknown]
  - Thrombocytopenia [Unknown]
  - Neutropenia [Unknown]
  - COVID-19 [Unknown]
  - Atrial fibrillation [Unknown]
  - Hypertension [Unknown]
  - Cardiac failure [Unknown]
  - Cerebrovascular accident [Unknown]
  - Infection [Unknown]
  - Anaemia [Unknown]
  - Therapy partial responder [Unknown]
  - Off label use [Unknown]
